FAERS Safety Report 11071069 (Version 5)
Quarter: 2016Q4

REPORT INFORMATION
  Report Type: Report from Study
  Country: BR (occurrence: BR)
  Receive Date: 20150428
  Receipt Date: 20161214
  Transmission Date: 20170206
  Serious: Yes (Hospitalization, Other)
  Sender: FDA-Public Use
  Company Number: BR-ROCHE-1569152

PATIENT
  Age: 52 Year
  Sex: Female
  Weight: 98 kg

DRUGS (17)
  1. XOLAIR [Suspect]
     Active Substance: OMALIZUMAB
     Indication: ASTHMA
     Route: 058
     Dates: start: 20101001
  2. RIVOTRIL [Concomitant]
     Active Substance: CLONAZEPAM
     Indication: AGITATION
     Route: 048
  3. RIVOTRIL [Concomitant]
     Active Substance: CLONAZEPAM
     Indication: NERVOUSNESS
     Dosage: 1/2 TABLET OF 2 MG
     Route: 048
  4. AZUKON [Concomitant]
     Active Substance: GLICLAZIDE
     Indication: DIABETES MELLITUS
     Route: 048
  5. XOLAIR [Suspect]
     Active Substance: OMALIZUMAB
     Route: 058
  6. CARDIZEM [Suspect]
     Active Substance: DILTIAZEM HYDROCHLORIDE
     Indication: PRODUCT USED FOR UNKNOWN INDICATION
     Route: 065
     Dates: start: 20150327
  7. BUSONID [Concomitant]
     Active Substance: BUDESONIDE
  8. VASTAREL [Concomitant]
     Active Substance: TRIMETAZIDINE DIHYDROCHLORIDE
     Indication: CARDIAC DISORDER
  9. GLIFAGE [Concomitant]
     Active Substance: METFORMIN HYDROCHLORIDE
     Indication: DIABETES MELLITUS
     Dosage: QHS
     Route: 065
     Dates: start: 2009
  10. PREDSIM [Concomitant]
     Active Substance: PREDNISOLONE
     Indication: INFLUENZA
  11. XOLAIR [Suspect]
     Active Substance: OMALIZUMAB
     Route: 058
     Dates: start: 20101001
  12. ONBRIZE [Concomitant]
     Active Substance: INDACATEROL MALEATE
     Route: 065
  13. GLIFAGE [Concomitant]
     Active Substance: METFORMIN HYDROCHLORIDE
     Route: 048
  14. PREDSIM [Concomitant]
     Active Substance: PREDNISOLONE
     Indication: ASTHMA
     Dosage: MORNING DURING 5 DAYS
     Route: 065
  15. XOLAIR [Suspect]
     Active Substance: OMALIZUMAB
     Route: 058
     Dates: start: 20150327
  16. INDAPEN [Concomitant]
     Active Substance: INDAPAMIDE
     Dosage: SLOW RELEASE (IN MORNING)
     Route: 065
  17. CARVEDILOL. [Concomitant]
     Active Substance: CARVEDILOL
     Indication: CARDIAC DISORDER
     Dosage: MORNING AND NIGHT
     Route: 048

REACTIONS (27)
  - Depression [Unknown]
  - Fluid retention [Unknown]
  - Discomfort [Recovering/Resolving]
  - Emotional disorder [Unknown]
  - Urinary tract infection [Recovered/Resolved]
  - Chronic obstructive pulmonary disease [Unknown]
  - Weight increased [Unknown]
  - Chest pain [Unknown]
  - Dysstasia [Recovering/Resolving]
  - Fatigue [Unknown]
  - Heart rate increased [Recovering/Resolving]
  - Weight decreased [Unknown]
  - Rash [Recovering/Resolving]
  - Diarrhoea [Recovering/Resolving]
  - Asthenia [Recovered/Resolved]
  - Vision blurred [Recovering/Resolving]
  - Dizziness [Recovering/Resolving]
  - Anxiety [Unknown]
  - Malaise [Recovering/Resolving]
  - Dyspnoea [Not Recovered/Not Resolved]
  - Influenza [Recovering/Resolving]
  - Gastrointestinal infection [Recovering/Resolving]
  - Blood glucose abnormal [Recovering/Resolving]
  - Blood potassium decreased [Unknown]
  - Pallor [Recovering/Resolving]
  - Gait disturbance [Recovering/Resolving]
  - Lung disorder [Unknown]

NARRATIVE: CASE EVENT DATE: 2012
